FAERS Safety Report 4479997-X (Version None)
Quarter: 2004Q3

REPORT INFORMATION
  Report Type: 
  Country: None (occurrence: None)
  Receive Date: 20040930
  Receipt Date: 20040827
  Transmission Date: 20050211
  Serious: No
  Sender: FDA-Public Use
  Company Number: 200410318BBE

PATIENT
  Age: 24 Month
  Sex: Male
  Weight: 11 kg

DRUGS (1)
  1. GAMUNEX [Suspect]
     Indication: IMMUNODEFICIENCY
     Dosage: 8680 MG, Q2WK, INTRAVENOUS
     Route: 042
     Dates: start: 20040824

REACTIONS (1)
  - PYREXIA [None]
